FAERS Safety Report 19418015 (Version 1)
Quarter: 2021Q2

REPORT INFORMATION
  Report Type: Spontaneous
  Country: DK (occurrence: DK)
  Receive Date: 20210615
  Receipt Date: 20210615
  Transmission Date: 20210717
  Serious: Yes (Hospitalization, Congenital Anomaly)
  Sender: FDA-Public Use
  Company Number: DK-TEVA-2021-DK-1921286

PATIENT
  Sex: Male

DRUGS (3)
  1. ARIPIPRAZOLE. [Suspect]
     Active Substance: ARIPIPRAZOLE
     Indication: SCHIZOPHRENIA
     Dosage: 5 MG
     Route: 064
     Dates: start: 20181121
  2. CITALOPRAM [Concomitant]
     Active Substance: CITALOPRAM HYDROBROMIDE
     Indication: DEPRESSION
     Route: 064
     Dates: start: 2019
  3. LAMOTRIGIN ^1A FARMA^ [Concomitant]
     Active Substance: LAMOTRIGINE
     Indication: DEPRESSION
     Route: 064
     Dates: start: 2019

REACTIONS (3)
  - Foetal exposure during pregnancy [Recovered/Resolved]
  - Premature baby [Unknown]
  - Oesophageal atresia [Not Recovered/Not Resolved]

NARRATIVE: CASE EVENT DATE: 2020
